FAERS Safety Report 8449634 (Version 2)
Quarter: 2012Q4

REPORT INFORMATION
  Report Type: 
  Country: DE (occurrence: DE)
  Receive Date: 20120309
  Receipt Date: 20121231
  Transmission Date: 20130627
  Serious: Yes (Hospitalization)
  Sender: FDA-Public Use
  Company Number: DE-BIOGENIDEC-2012BI004011

PATIENT
  Age: 54 Year
  Sex: Male

DRUGS (14)
  1. TYSABRI [Suspect]
     Indication: MULTIPLE SCLEROSIS
     Route: 042
     Dates: start: 2007
  2. TORASEMID [Concomitant]
     Indication: PRODUCT USED FOR UNKNOWN INDICATION
     Dates: end: 2011
  3. METFORMIN [Concomitant]
     Indication: PRODUCT USED FOR UNKNOWN INDICATION
     Dates: end: 2011
  4. KEPPRA [Concomitant]
     Indication: CONVULSION
     Route: 048
     Dates: start: 2008
  5. BACLOFEN [Concomitant]
     Indication: PRODUCT USED FOR UNKNOWN INDICATION
     Dates: end: 2011
  6. DOXAZOSIN [Concomitant]
     Indication: PRODUCT USED FOR UNKNOWN INDICATION
     Dates: end: 2011
  7. METOHEXAL [Concomitant]
     Indication: HYPERTENSION
     Route: 048
     Dates: start: 1990
  8. DIOVAN [Concomitant]
     Indication: PRODUCT USED FOR UNKNOWN INDICATION
  9. SIMVASTATIN [Concomitant]
     Indication: PRODUCT USED FOR UNKNOWN INDICATION
  10. LACTULOSE [Concomitant]
     Indication: PRODUCT USED FOR UNKNOWN INDICATION
  11. ALISKIREN [Concomitant]
     Indication: PRODUCT USED FOR UNKNOWN INDICATION
  12. AMLODIPIN [Concomitant]
     Indication: HYPERTENSION
     Route: 048
     Dates: start: 2000
  13. CITALOPRAM [Concomitant]
     Indication: DEPRESSED MOOD
     Route: 048
     Dates: start: 2008
  14. PANTOZOL [Concomitant]
     Indication: PRODUCT USED FOR UNKNOWN INDICATION

REACTIONS (5)
  - Urosepsis [Recovered/Resolved]
  - Klebsiella infection [Recovered/Resolved]
  - Proteus infection [Recovered/Resolved]
  - Staphylococcus test positive [Recovered/Resolved]
  - Clostridium difficile colitis [Unknown]
